FAERS Safety Report 4510338-5 (Version None)
Quarter: 2004Q4

REPORT INFORMATION
  Report Type: 
  Country: None (occurrence: None)
  Receive Date: 20041122
  Receipt Date: 20041109
  Transmission Date: 20050328
  Serious: Yes (Hospitalization)
  Sender: FDA-Public Use
  Company Number: HQWYE388911NOV04

PATIENT
  Age: 41 Year
  Sex: Male
  Weight: 90.8 kg

DRUGS (6)
  1. EFFEXOR XR [Suspect]
     Indication: DEPRESSION
     Dosage: SEE IMAGE
     Route: 048
     Dates: start: 20030101, end: 20030101
  2. EFFEXOR XR [Suspect]
     Indication: DEPRESSION
     Dosage: SEE IMAGE
     Route: 048
     Dates: start: 20030101, end: 20030101
  3. EFFEXOR XR [Suspect]
     Indication: DEPRESSION
     Dosage: SEE IMAGE
     Route: 048
     Dates: start: 20030101, end: 20030401
  4. EFFEXOR XR [Suspect]
     Indication: DEPRESSION
     Dosage: SEE IMAGE
     Route: 048
     Dates: start: 20030401, end: 20030601
  5. EFFEXOR XR [Suspect]
     Indication: DEPRESSION
     Dosage: SEE IMAGE
     Route: 048
     Dates: start: 20030601
  6. ADDERALL [Concomitant]

REACTIONS (12)
  - BLOOD PRESSURE ABNORMAL [None]
  - CELLULITIS STAPHYLOCOCCAL [None]
  - DIZZINESS [None]
  - DIZZINESS POSTURAL [None]
  - DRUG WITHDRAWAL SYNDROME [None]
  - EJACULATION DELAYED [None]
  - FURUNCLE [None]
  - GROIN ABSCESS [None]
  - LIBIDO DECREASED [None]
  - ORTHOSTATIC HYPOTENSION [None]
  - SUBCUTANEOUS ABSCESS [None]
  - SUICIDAL IDEATION [None]
